FAERS Safety Report 6233787-6 (Version None)
Quarter: 2009Q2

REPORT INFORMATION
  Report Type: 
  Country: None (occurrence: None)
  Receive Date: 20090618
  Receipt Date: 20090612
  Transmission Date: 20091009
  Serious: Yes (Hospitalization, Other)
  Sender: FDA-Public Use
  Company Number: CH-WYE-G03085109

PATIENT
  Age: 65 Year
  Sex: Female

DRUGS (9)
  1. EFFEXOR [Suspect]
     Indication: DEPRESSION
     Route: 048
     Dates: start: 20080704, end: 20080715
  2. EFFEXOR [Interacting]
     Route: 048
     Dates: start: 20080716, end: 20080701
  3. EFFEXOR [Interacting]
     Route: 048
     Dates: start: 20080701
  4. IRBESARTAN [Concomitant]
     Dates: start: 20080711, end: 20080714
  5. TORSEMIDE [Concomitant]
     Route: 048
     Dates: start: 20080707, end: 20080711
  6. TORSEMIDE [Concomitant]
     Route: 048
     Dates: start: 20080712, end: 20080714
  7. SEROQUEL [Interacting]
     Route: 048
     Dates: start: 20080704, end: 20080711
  8. DEANXIT [Interacting]
     Dosage: 0.5 AND 10 MG PER DAY
     Route: 048
     Dates: start: 20080501, end: 20080707
  9. DEANXIT [Interacting]
     Dosage: 0.25 AND 5 MG PER DAY
     Route: 048
     Dates: start: 20080708, end: 20080711

REACTIONS (5)
  - CARDIAC DISORDER [None]
  - CONDITION AGGRAVATED [None]
  - DRUG INTERACTION [None]
  - ELECTROCARDIOGRAM QT PROLONGED [None]
  - VASCULAR ENCEPHALOPATHY [None]
